FAERS Safety Report 14487612 (Version 1)
Quarter: 2018Q1

REPORT INFORMATION
  Report Type: Spontaneous
  Country: ES (occurrence: ES)
  Receive Date: 20180205
  Receipt Date: 20180205
  Transmission Date: 20180509
  Serious: Yes (Disabling)
  Sender: FDA-Public Use
  Company Number: ES-ASTRAZENECA-2018SE11900

PATIENT
  Age: 72 Year
  Sex: Male

DRUGS (8)
  1. ADIRO [Concomitant]
     Active Substance: ASPIRIN
     Dosage: DAILY
     Route: 048
     Dates: start: 20170111
  2. EMCONCOR COR [Concomitant]
     Active Substance: BISOPROLOL
     Dosage: DAILY
     Route: 048
     Dates: start: 20170111
  3. ZYLORIC [Concomitant]
     Active Substance: ALLOPURINOL
     Dosage: DAILY
     Route: 048
     Dates: start: 20170111
  4. CAPENON HCT [Interacting]
     Active Substance: AMLODIPINE BESYLATE\HYDROCHLOROTHIAZIDE\OLMESARTAN MEDOXOMIL
     Indication: HYPERTENSION
     Route: 048
     Dates: start: 20170111
  5. OMEPRAZOL NORMON [Concomitant]
     Dosage: DAILY
     Route: 048
     Dates: start: 20170111
  6. CRESTOR [Suspect]
     Active Substance: ROSUVASTATIN CALCIUM
     Dosage: DAILY
     Route: 048
     Dates: start: 20170104, end: 20171020
  7. CRESTOR [Interacting]
     Active Substance: ROSUVASTATIN CALCIUM
     Dosage: REDUCED DOSE
     Route: 048
  8. ORFIDAL [Concomitant]
     Active Substance: LORAZEPAM
     Dosage: DAILY
     Route: 048
     Dates: start: 20170111

REACTIONS (1)
  - Tendon rupture [Recovered/Resolved]

NARRATIVE: CASE EVENT DATE: 20170622
